FAERS Safety Report 25358602 (Version 2)
Quarter: 2025Q2

REPORT INFORMATION
  Report Type: Report from Study
  Country: US (occurrence: US)
  Receive Date: 20250526
  Receipt Date: 20250608
  Transmission Date: 20250717
  Serious: Yes (Other)
  Sender: TAKEDA
  Company Number: US-TAKEDA-2023TUS121109

PATIENT
  Sex: Male

DRUGS (18)
  1. MARIBAVIR [Suspect]
     Active Substance: MARIBAVIR
     Indication: Cytomegalovirus infection
     Dosage: 400 MILLIGRAM, BID
  2. MARIBAVIR [Suspect]
     Active Substance: MARIBAVIR
     Indication: Cytomegalovirus viraemia
     Dosage: 400 MILLIGRAM, BID
  3. MARIBAVIR [Suspect]
     Active Substance: MARIBAVIR
     Dosage: 400 MILLIGRAM, BID
     Dates: start: 20250520
  4. VALCYTE [Suspect]
     Active Substance: VALGANCICLOVIR HYDROCHLORIDE
     Indication: Cytomegalovirus infection
  5. MOUNJARO [Concomitant]
     Active Substance: TIRZEPATIDE
     Dosage: 12.5 MILLIGRAM, 1/WEEK
     Dates: start: 202411
  6. ASPIRIN [Concomitant]
     Active Substance: ASPIRIN
     Dosage: 81 MILLIGRAM, QD
  7. ATOVAQUONE [Concomitant]
     Active Substance: ATOVAQUONE
     Dosage: 10 MILLILITER, QD
  8. DOCUSATE SODIUM [Concomitant]
     Active Substance: DOCUSATE SODIUM
     Dosage: 100 MILLIGRAM, BID
  9. DULOXETINE HYDROCHLORIDE [Concomitant]
     Active Substance: DULOXETINE HYDROCHLORIDE
     Dosage: 20 MILLIGRAM, QD
  10. FAMOTIDINE [Concomitant]
     Active Substance: FAMOTIDINE
  11. MAGNESIUM OXIDE [Concomitant]
     Active Substance: MAGNESIUM OXIDE
     Dosage: 400 MILLIGRAM, BID
  12. NIFEDIPINE [Concomitant]
     Active Substance: NIFEDIPINE
     Dosage: 30 MILLIGRAM, BID
  13. NIFEDIPINE [Concomitant]
     Active Substance: NIFEDIPINE
     Dosage: 30 MILLIGRAM, QD
  14. PREDNISONE [Concomitant]
     Active Substance: PREDNISONE
     Dosage: 5 MILLIGRAM, QD
  15. ROSUVASTATIN CALCIUM [Concomitant]
     Active Substance: ROSUVASTATIN CALCIUM
     Dosage: 40 MILLIGRAM, QD
  16. SENNA [Concomitant]
     Active Substance: SENNOSIDES
     Dosage: 8.6 MILLIGRAM, QD
  17. SUMATRIPTAN SUCCINATE [Concomitant]
     Active Substance: SUMATRIPTAN SUCCINATE
  18. TACROLIMUS [Concomitant]
     Active Substance: TACROLIMUS
     Dosage: 1 MILLIGRAM, BID

REACTIONS (7)
  - Cytomegalovirus chorioretinitis [Unknown]
  - Joint swelling [Unknown]
  - Drug resistance [Unknown]
  - Inappropriate schedule of product administration [Unknown]
  - Oedema [Unknown]
  - Skin lesion [Unknown]
  - Dysgeusia [Unknown]
